FAERS Safety Report 9246573 (Version 2)
Quarter: 2013Q2

REPORT INFORMATION
  Report Type: Spontaneous
  Country: US (occurrence: US)
  Receive Date: 20130422
  Receipt Date: 20130510
  Transmission Date: 20140414
  Serious: Yes (Hospitalization)
  Sender: FDA-Public Use
  Company Number: US-ROCHE-1216899

PATIENT
  Age: 59 Year
  Sex: Male

DRUGS (1)
  1. PEGASYS [Suspect]
     Indication: PRODUCT USED FOR UNKNOWN INDICATION
     Dosage: PROCLICK
     Route: 058
     Dates: start: 201303, end: 20130401

REACTIONS (3)
  - Pneumonia [Unknown]
  - Hepatic pain [Unknown]
  - Abdominal pain [Recovered/Resolved]
